FAERS Safety Report 9671789 (Version 2)
Quarter: 2013Q4

REPORT INFORMATION
  Report Type: Report from Study
  Country: US (occurrence: US)
  Receive Date: 20131106
  Receipt Date: 20131110
  Transmission Date: 20140711
  Serious: Yes (Other)
  Sender: FDA-Public Use
  Company Number: PHEH2013US022972

PATIENT
  Age: 52 Year
  Sex: Male
  Weight: 102.9 kg

DRUGS (6)
  1. GILENYA [Suspect]
     Indication: MULTIPLE SCLEROSIS
     Dosage: 0.5 MG, QD
     Route: 048
     Dates: start: 201210, end: 20131030
  2. METFORMIN [Concomitant]
  3. GLYBURIDE [Concomitant]
  4. LISINOPRIL [Concomitant]
  5. 5 FU [Concomitant]
  6. LEUCOVORIN [Concomitant]

REACTIONS (4)
  - Macular oedema [Unknown]
  - Vision blurred [Not Recovered/Not Resolved]
  - Intraocular pressure increased [Unknown]
  - Ophthalmological examination abnormal [Not Recovered/Not Resolved]
